FAERS Safety Report 24784500 (Version 2)
Quarter: 2025Q1

REPORT INFORMATION
  Report Type: Report from Study
  Country: GB (occurrence: GB)
  Receive Date: 20241227
  Receipt Date: 20250115
  Transmission Date: 20250409
  Serious: Yes (Other)
  Sender: REGENERON
  Company Number: GB-REGENERON PHARMACEUTICALS, INC.-2024-178839

PATIENT
  Age: 31 Year
  Sex: Female

DRUGS (8)
  1. POZELIMAB [Suspect]
     Active Substance: POZELIMAB
     Indication: Paroxysmal nocturnal haemoglobinuria
     Dosage: 400 MG, Q4W
     Route: 058
     Dates: start: 20241108
  2. CEMDISIRAN [Suspect]
     Active Substance: CEMDISIRAN
     Indication: Paroxysmal nocturnal haemoglobinuria
     Dosage: 200 MG, Q4W
     Route: 058
     Dates: start: 20241011
  3. VENLAFAXINE [Concomitant]
     Active Substance: VENLAFAXINE HYDROCHLORIDE
     Indication: Migraine
     Dosage: 37.5 MG, BID
     Route: 048
  4. WARFARIN [Concomitant]
     Active Substance: WARFARIN
     Indication: Thrombosis
     Dates: start: 2022
  5. RAVULIZUMAB [Concomitant]
     Active Substance: RAVULIZUMAB
     Indication: Product used for unknown indication
     Dates: start: 20220310
  6. DOXYCYCLINE [Concomitant]
     Active Substance: DOXYCYCLINE
     Indication: Product used for unknown indication
  7. FOLIC ACID [Concomitant]
     Active Substance: FOLIC ACID
     Indication: Product used for unknown indication
  8. CYCLIZINE [Concomitant]
     Active Substance: CYCLIZINE
     Indication: Product used for unknown indication

REACTIONS (2)
  - Injection site reaction [Not Recovered/Not Resolved]
  - Injection site reaction [Recovering/Resolving]

NARRATIVE: CASE EVENT DATE: 20241119
